FAERS Safety Report 8102186-4 (Version None)
Quarter: 2012Q1

REPORT INFORMATION
  Report Type: 
  Country: None (occurrence: None)
  Receive Date: 20120201
  Receipt Date: 20120123
  Transmission Date: 20120608
  Serious: Yes (Hospitalization)
  Sender: FDA-Public Use
  Company Number: US-BIOGENIDEC-2011BI048168

PATIENT
  Age: 53 Year
  Sex: Female

DRUGS (3)
  1. AVONEX [Suspect]
     Route: 030
     Dates: start: 20100801
  2. PILLS (NOS) [Concomitant]
     Indication: INSOMNIA
  3. AVONEX [Suspect]
     Indication: MULTIPLE SCLEROSIS
     Route: 030
     Dates: start: 20080709

REACTIONS (5)
  - OVERDOSE [None]
  - DEPRESSION [None]
  - SUICIDAL IDEATION [None]
  - MENTAL DISORDER [None]
  - INSOMNIA [None]
